FAERS Safety Report 10419394 (Version 1)
Quarter: 2014Q2

REPORT INFORMATION
  Report Type: Spontaneous
  Country: US (occurrence: None)
  Receive Date: 20140627
  Receipt Date: 20140627
  Transmission Date: 20141212
  Serious: Yes (Hospitalization)
  Sender: FDA-Public Use
  Company Number: PHEH2013US023636

PATIENT
  Sex: Male

DRUGS (1)
  1. DIOVAN HCT (VALSARTAN, HYDROCHLOROTHIAZIDE) UNKNOWN [Suspect]
     Indication: HYPERTENSION

REACTIONS (4)
  - Gastroenteritis viral [None]
  - Dehydration [None]
  - Vomiting [None]
  - Diarrhoea [None]
